FAERS Safety Report 11787679 (Version 1)
Quarter: 2015Q4

REPORT INFORMATION
  Report Type: Spontaneous
  Country: CA (occurrence: CA)
  Receive Date: 20151130
  Receipt Date: 20151130
  Transmission Date: 20160305
  Serious: Yes (Death, Life-Threatening)
  Sender: FDA-Public Use
  Company Number: CA-IGSA-GTI003688

PATIENT
  Age: 72 Year
  Sex: Male

DRUGS (5)
  1. RED BLOOD CELLS [Concomitant]
     Active Substance: HUMAN RED BLOOD CELL
     Dates: start: 20151111
  2. RED CELLS CONCENTRATES-LEUKOCYTES REDUCED [Concomitant]
     Dates: start: 20151107
  3. ALBUMIN 25% [Suspect]
     Active Substance: ALBUMIN (HUMAN)
     Indication: PRODUCT USED FOR UNKNOWN INDICATION
     Dates: start: 20151110, end: 20151110
  4. RED CELLS CONCENTRATES-LEUKOCYTES REDUCED [Concomitant]
     Dates: start: 20151107
  5. RED BLOOD CELLS [Concomitant]
     Active Substance: HUMAN RED BLOOD CELL
     Dates: start: 20151111

REACTIONS (6)
  - Hypoxia [Fatal]
  - Transfusion-related acute lung injury [Fatal]
  - Pulmonary oedema [Fatal]
  - Lung infiltration [Fatal]
  - Blood pressure decreased [Fatal]
  - Dyspnoea [Fatal]

NARRATIVE: CASE EVENT DATE: 20151110
